FAERS Safety Report 4600191-3 (Version None)
Quarter: 2005Q1

REPORT INFORMATION
  Report Type: 
  Country: None (occurrence: None)
  Receive Date: 20050307
  Receipt Date: 20050224
  Transmission Date: 20050727
  Serious: Yes (Death)
  Sender: FDA-Public Use
  Company Number: US-ROCHE-396832

PATIENT
  Age: 23 Year
  Sex: Male
  Weight: 88.5 kg

DRUGS (1)
  1. ACCUTANE [Suspect]
     Indication: ACNE
     Route: 048
     Dates: start: 19850615, end: 19870615

REACTIONS (8)
  - BRONCHIOLOALVEOLAR CARCINOMA [None]
  - CONVULSION [None]
  - FATIGUE [None]
  - GRAND MAL CONVULSION [None]
  - INSOMNIA [None]
  - METASTASES TO LYMPH NODES [None]
  - STRESS [None]
  - THROMBOSIS [None]
